FAERS Safety Report 17983080 (Version 5)
Quarter: 2021Q1

REPORT INFORMATION
  Report Type: Spontaneous
  Country: US (occurrence: US)
  Receive Date: 20200706
  Receipt Date: 20210315
  Transmission Date: 20210419
  Serious: No
  Sender: FDA-Public Use
  Company Number: US-PFIZER INC-2020256895

PATIENT
  Age: 47 Year
  Sex: Female

DRUGS (2)
  1. PREDNISONE. [Concomitant]
     Active Substance: PREDNISONE
     Dosage: UNK
  2. XELJANZ [Suspect]
     Active Substance: TOFACITINIB CITRATE
     Indication: RHEUMATOID ARTHRITIS
     Dosage: 5 MG, 2X/DAY
     Route: 048
     Dates: start: 202005, end: 202102

REACTIONS (13)
  - Malaise [Unknown]
  - Drug ineffective [Unknown]
  - Inflammation [Unknown]
  - Vision blurred [Unknown]
  - Arthritis [Unknown]
  - Headache [Unknown]
  - Dizziness [Unknown]
  - Pharyngeal swelling [Recovering/Resolving]
  - Depressed mood [Unknown]
  - Memory impairment [Unknown]
  - Dysphagia [Recovering/Resolving]
  - Pain [Unknown]
  - Tonsillar disorder [Recovering/Resolving]

NARRATIVE: CASE EVENT DATE: 2020
